FAERS Safety Report 7974758-9 (Version None)
Quarter: 2011Q4

REPORT INFORMATION
  Report Type: 
  Country: None (occurrence: None)
  Receive Date: 20111213
  Receipt Date: 20111205
  Transmission Date: 20120403
  Serious: Yes (Disabling)
  Sender: FDA-Public Use
  Company Number: FR-ASTRAZENECA-2011SE73983

PATIENT
  Sex: Female

DRUGS (2)
  1. ZOMETA [Suspect]
     Route: 042
     Dates: start: 20100705
  2. FASLODEX [Suspect]
     Dosage: 250 MG / 5 ML TWICE A MONTH
     Route: 030
     Dates: start: 20100705

REACTIONS (1)
  - DYSAESTHESIA [None]
